FAERS Safety Report 10279519 (Version 1)
Quarter: 2014Q3

REPORT INFORMATION
  Report Type: Spontaneous
  Country: TW (occurrence: None)
  Receive Date: 20140701
  Receipt Date: 20140701
  Transmission Date: 20150326
  Serious: Yes (Death, Hospitalization)
  Sender: FDA-Public Use
  Company Number: 153339

PATIENT
  Age: 80 Year
  Sex: Male

DRUGS (2)
  1. LEUCOVORIN CALCIUM FOR INJ 50 MG-BEDFORD LABS, INC [Suspect]
     Active Substance: LEUCOVORIN CALCIUM
     Indication: COLON CANCER METASTATIC
  2. IRINOTECAN HCL INJ. 100 MG/5ML [Suspect]
     Active Substance: IRINOTECAN HYDROCHLORIDE
     Indication: COLON CANCER METASTATIC

REACTIONS (2)
  - Respiratory failure [None]
  - Tumour lysis syndrome [None]
